FAERS Safety Report 7412510-3 (Version None)
Quarter: 2011Q2

REPORT INFORMATION
  Report Type: 
  Country: None (occurrence: None)
  Receive Date: 20110413
  Receipt Date: 20110405
  Transmission Date: 20111010
  Serious: Yes (Life-Threatening, Hospitalization, Other)
  Sender: FDA-Public Use
  Company Number: FR-ELI_LILLY_AND_COMPANY-FR201103004509

PATIENT
  Age: 53 Year
  Sex: Male
  Weight: 58 kg

DRUGS (8)
  1. ASPIRIN [Concomitant]
     Indication: ACUTE CORONARY SYNDROME
     Dosage: 75 MG, UNK
     Dates: start: 20100801
  2. ISOPTIN [Concomitant]
     Indication: ACUTE CORONARY SYNDROME
     Dosage: 240 MG, UNK
     Dates: start: 20100801
  3. TAHOR [Concomitant]
     Indication: ACUTE CORONARY SYNDROME
     Dosage: 80 MG, UNK
     Dates: start: 20100801
  4. COVERSYL [Concomitant]
     Indication: ACUTE CORONARY SYNDROME
     Dosage: 5 MG, UNK
     Dates: start: 20100801
  5. EFFIENT [Suspect]
     Dosage: UNK, UNKNOWN
     Route: 065
     Dates: start: 20110209
  6. OMACOR [Concomitant]
     Indication: ACUTE CORONARY SYNDROME
     Dosage: 1 G, UNK
     Dates: start: 20100801
  7. KARDEGIC [Concomitant]
  8. EFFIENT [Suspect]
     Indication: ACUTE CORONARY SYNDROME
     Dosage: 10 MG, QD
     Route: 048
     Dates: start: 20100801, end: 20110203

REACTIONS (4)
  - SHOCK HAEMORRHAGIC [None]
  - RECTAL HAEMORRHAGE [None]
  - OVERDOSE [None]
  - ACUTE CORONARY SYNDROME [None]
